FAERS Safety Report 15849997 (Version 4)
Quarter: 2020Q2

REPORT INFORMATION
  Report Type: Spontaneous
  Country: US (occurrence: US)
  Receive Date: 20190121
  Receipt Date: 20200508
  Transmission Date: 20200713
  Serious: Yes (Other)
  Sender: FDA-Public Use
  Company Number: US-SA-2019SA012459

PATIENT
  Age: 81 Year
  Sex: Male

DRUGS (2)
  1. NASACORT ALLERGY 24HR [Suspect]
     Active Substance: TRIAMCINOLONE ACETONIDE
     Indication: NASAL CONGESTION
     Dosage: 2 SPRAYS IN EACH NOSTRIL
     Route: 045
  2. NASACORT ALLERGY 24HR [Suspect]
     Active Substance: TRIAMCINOLONE ACETONIDE
     Dosage: 3 SPRAYS IN EACH NOSTRIL LAST NIGHT
     Route: 045
     Dates: start: 20200309

REACTIONS (3)
  - Nasal congestion [Not Recovered/Not Resolved]
  - Glaucoma [Unknown]
  - Drug ineffective [Not Recovered/Not Resolved]
